FAERS Safety Report 24622774 (Version 1)
Quarter: 2024Q4

REPORT INFORMATION
  Report Type: Spontaneous
  Country: US (occurrence: US)
  Receive Date: 20241115
  Receipt Date: 20241115
  Transmission Date: 20250114
  Serious: No
  Sender: PADAGIS
  Company Number: US-PADAGIS-2024PAD01771

PATIENT

DRUGS (5)
  1. CLINDAMYCIN PALMITATE HYDROCHLORIDE [Suspect]
     Active Substance: CLINDAMYCIN PALMITATE HYDROCHLORIDE
     Indication: Amniotic cavity infection
     Dosage: CONTINUED FOR 24 H POSTPARTUM
     Route: 065
  2. BETAMETHASONE DIPROPIONATE USP, 0.05% [Suspect]
     Active Substance: BETAMETHASONE DIPROPIONATE
     Indication: Maternal therapy to enhance foetal lung maturity
     Dosage: UNK
     Route: 065
  3. GENTAMICIN SULFATE [Suspect]
     Active Substance: GENTAMICIN SULFATE
     Indication: Amniotic cavity infection
     Dosage: CONTINUED FOR 24 H POSTPARTUM
     Route: 065
  4. AMPICILLIN [Suspect]
     Active Substance: AMPICILLIN
     Indication: Amniotic cavity infection
     Dosage: CONTINUED FOR 24 H POSTPARTUM
     Route: 065
  5. URSODIOL [Suspect]
     Active Substance: URSODIOL
     Indication: Product used for unknown indication
     Dosage: 300 MG, TID
     Route: 065

REACTIONS (2)
  - Maternal exposure during pregnancy [Unknown]
  - Product use in unapproved indication [Unknown]
